FAERS Safety Report 6803717-4 (Version None)
Quarter: 2010Q2

REPORT INFORMATION
  Report Type: 
  Country: None (occurrence: None)
  Receive Date: 20100628
  Receipt Date: 20100617
  Transmission Date: 20101027
  Serious: Yes (Disabling)
  Sender: FDA-Public Use
  Company Number: FR-KINGPHARMUSA00001-K201000573

PATIENT
  Age: 37 Year
  Sex: Female

DRUGS (3)
  1. ALTACE [Suspect]
     Indication: RENAL DISORDER
     Dosage: 10 MG, QD
     Route: 048
     Dates: start: 19950501
  2. HUMALOG [Concomitant]
  3. LANTUS [Concomitant]

REACTIONS (7)
  - ARTHRITIS [None]
  - ARTHROPATHY [None]
  - BONE CYST [None]
  - BONE PAIN [None]
  - MULTIPLE FRACTURES [None]
  - NEUROPATHY PERIPHERAL [None]
  - SENSORY LOSS [None]
